FAERS Safety Report 23612169 (Version 1)
Quarter: 2024Q1

REPORT INFORMATION
  Report Type: Report from Study
  Country: NL (occurrence: NL)
  Receive Date: 20240308
  Receipt Date: 20240308
  Transmission Date: 20240409
  Serious: Yes (Death, Other)
  Sender: FDA-Public Use
  Company Number: NL-VER-202400020

PATIENT
  Age: 86 Year
  Sex: Male

DRUGS (3)
  1. TRIPTORELIN [Suspect]
     Active Substance: TRIPTORELIN
     Indication: Prostate cancer
     Dosage: 0.125 MILLIGRAM(S) (11.25 MILLIGRAM(S), 1 IN 3 MONTH). SUSPENSION FOR INJECTION
     Route: 030
     Dates: start: 20220821
  2. TRIPTORELIN [Suspect]
     Active Substance: TRIPTORELIN
     Indication: Prostate cancer
     Dosage: 0.125 MILLIGRAM(S) (11.25 MILLIGRAM(S), 1 IN 3 MONTH. SUSPENSION FOR INJECTION
     Route: 030
     Dates: start: 20231017
  3. TRIPTORELIN [Suspect]
     Active Substance: TRIPTORELIN
     Indication: Prostate cancer
     Dosage: 0.125 MILLIGRAM(S) (11.25 MILLIGRAM(S), 1 IN 3 MONTH. SUSPENSION FOR INJECTION.
     Route: 030
     Dates: start: 20240116

REACTIONS (1)
  - Death [Fatal]

NARRATIVE: CASE EVENT DATE: 20240221
